FAERS Safety Report 10580113 (Version 1)
Quarter: 2014Q4

REPORT INFORMATION
  Report Type: Spontaneous
  Country: US (occurrence: US)
  Receive Date: 20141112
  Receipt Date: 20141112
  Transmission Date: 20150529
  Serious: No
  Sender: FDA-Public Use
  Company Number: US-UPSHER-SMITH LABORATORIES, INC.-14001274

PATIENT
  Age: 83 Year
  Sex: Female

DRUGS (3)
  1. JANTOVEN [Suspect]
     Active Substance: WARFARIN SODIUM
     Indication: EMBOLISM
     Dosage: 5 MG, QD
     Route: 048
     Dates: start: 201405
  2. ASPIRIN. [Concomitant]
     Active Substance: ASPIRIN
     Dosage: UNK
  3. DIOVAN [Concomitant]
     Active Substance: VALSARTAN
     Dosage: UNK

REACTIONS (4)
  - Gait disturbance [Not Recovered/Not Resolved]
  - Drug dose omission [Unknown]
  - Hypoaesthesia [Not Recovered/Not Resolved]
  - Skin discolouration [Not Recovered/Not Resolved]

NARRATIVE: CASE EVENT DATE: 201405
